FAERS Safety Report 5049237-1 (Version None)
Quarter: 2006Q2

REPORT INFORMATION
  Report Type: 
  Country: None (occurrence: None)
  Receive Date: 20060601
  Receipt Date: 20060302
  Transmission Date: 20061013
  Serious: No
  Sender: FDA-Public Use
  Company Number: US200603000731

PATIENT
  Age: 45 Year
  Sex: Female

DRUGS (5)
  1. CYMBALTA [Suspect]
     Indication: DEPRESSION
     Dosage: 30 MG, EACH EVENING
     Dates: start: 20060201
  2. SEROQUEL /UNK/ (QUETIAPINE FUMARATE) [Concomitant]
  3. EFFEXOR [Concomitant]
  4. BACLOFEN [Concomitant]
  5. KLONOPIN [Concomitant]

REACTIONS (9)
  - BACK PAIN [None]
  - CHILLS [None]
  - DYSGEUSIA [None]
  - HOT FLUSH [None]
  - HYPERHIDROSIS [None]
  - MALAISE [None]
  - NERVOUSNESS [None]
  - PANIC ATTACK [None]
  - PYREXIA [None]
